FAERS Safety Report 15989204 (Version 1)
Quarter: 2019Q1

REPORT INFORMATION
  Report Type: Spontaneous
  Country: ES (occurrence: ES)
  Receive Date: 20190221
  Receipt Date: 20190221
  Transmission Date: 20190418
  Serious: Yes (Hospitalization)
  Sender: FDA-Public Use
  Company Number: ES-B.I. PHARMACEUTICALS,INC./RIDGEFIELD-2019-BI-006956

PATIENT
  Sex: Female

DRUGS (2)
  1. SYNJARDY [Suspect]
     Active Substance: EMPAGLIFLOZIN\METFORMIN HYDROCHLORIDE
     Indication: MONOGENIC DIABETES
     Route: 065
  2. BASAL INSULIN [Concomitant]
     Active Substance: INSULIN HUMAN
     Indication: MONOGENIC DIABETES
     Route: 065

REACTIONS (1)
  - Diabetic ketoacidosis [Unknown]
